FAERS Safety Report 9507126 (Version 1)
Quarter: 2013Q1

REPORT INFORMATION
  Report Type: Spontaneous
  Country: US (occurrence: None)
  Receive Date: 20130305
  Receipt Date: 20130305
  Transmission Date: 20140127
  Serious: No
  Sender: FDA-Public Use
  Company Number: 163-21880-12052607

PATIENT
  Age: 77 Year
  Sex: Female
  Weight: 77.79 kg

DRUGS (7)
  1. REVLIMID [Suspect]
     Indication: PLASMA CELL MYELOMA
     Dosage: 10MG, 1 IN 1 D, PO
     Route: 048
     Dates: start: 201203
  2. ACYCLOVIR (ACICLOVIR) [Concomitant]
  3. AMLODIPINE (AMLODIPINE) [Concomitant]
  4. SIMVASTATIN (SIMVASTATIN) [Concomitant]
  5. VICODIN (VICODIN) [Concomitant]
  6. COMPAZINE (PROCHLORPERAZINE EDISYLATE) [Concomitant]
  7. DECADRON (DEXAMETHASONE) [Concomitant]

REACTIONS (1)
  - Rash generalised [None]
